FAERS Safety Report 6503205-9 (Version None)
Quarter: 2009Q4

REPORT INFORMATION
  Report Type: 
  Country: None (occurrence: None)
  Receive Date: 20091217
  Receipt Date: 20091207
  Transmission Date: 20100525
  Serious: Yes (Other)
  Sender: FDA-Public Use
  Company Number: BR-JNJFOC-20091203209

PATIENT
  Age: 27 Year
  Sex: Female
  Weight: 59 kg

DRUGS (1)
  1. MICRONOR [Suspect]
     Indication: DRUG USE FOR UNKNOWN INDICATION
     Route: 065

REACTIONS (6)
  - ABDOMINAL RIGIDITY [None]
  - ALOPECIA [None]
  - DIZZINESS [None]
  - HEADACHE [None]
  - POLLAKIURIA [None]
  - WEIGHT DECREASED [None]
